FAERS Safety Report 4320925-5 (Version None)
Quarter: 2004Q1

REPORT INFORMATION
  Report Type: 
  Country: None (occurrence: None)
  Receive Date: 20040322
  Receipt Date: 20040226
  Transmission Date: 20041129
  Serious: Yes (Death, Hospitalization, Other)
  Sender: FDA-Public Use
  Company Number: BW-BRISTOL-MYERS SQUIBB COMPANY-12517777

PATIENT
  Age: 27 Year
  Sex: Female

DRUGS (3)
  1. EFAVIRENZ [Suspect]
     Dates: start: 20031003, end: 20040130
  2. STAVUDINE [Suspect]
     Dates: start: 20031003, end: 20040130
  3. LAMIVUDINE [Suspect]
     Dates: start: 20031003, end: 20040130

REACTIONS (6)
  - BLOOD AMYLASE INCREASED [None]
  - DEATH [None]
  - DIARRHOEA [None]
  - LIPASE INCREASED [None]
  - PNEUMONIA [None]
  - VOMITING [None]
